FAERS Safety Report 11416589 (Version 1)
Quarter: 2015Q3

REPORT INFORMATION
  Report Type: Other
  Country: AU (occurrence: AU)
  Receive Date: 20150825
  Receipt Date: 20150825
  Transmission Date: 20151125
  Serious: Yes (Hospitalization, Other)
  Sender: FDA-Public Use
  Company Number: AU-ACTELION-A-CH2015-122807

PATIENT
  Age: 18 Year
  Sex: Male

DRUGS (4)
  1. LASIX [Concomitant]
     Active Substance: FUROSEMIDE
  2. SILDENAFIL. [Concomitant]
     Active Substance: SILDENAFIL
  3. TRACLEER [Suspect]
     Active Substance: BOSENTAN
     Indication: PULMONARY ARTERIAL HYPERTENSION
     Dosage: UNK
     Route: 048
  4. COUMADIN [Concomitant]
     Active Substance: WARFARIN SODIUM

REACTIONS (7)
  - Right ventricular hypertrophy [Unknown]
  - Cyanosis [Recovering/Resolving]
  - Exercise test abnormal [Recovering/Resolving]
  - Systemic-pulmonary artery shunt [Recovering/Resolving]
  - Syncope [Recovered/Resolved]
  - Respiratory tract infection [Recovered/Resolved]
  - Pneumothorax [Recovering/Resolving]
